FAERS Safety Report 15043160 (Version 1)
Quarter: 2018Q2

REPORT INFORMATION
  Report Type: Spontaneous
  Country: BR (occurrence: BR)
  Receive Date: 20180621
  Receipt Date: 20180621
  Transmission Date: 20180711
  Serious: Yes (Other)
  Sender: FDA-Public Use
  Company Number: BR-ABBVIE-18K-020-2390424-00

PATIENT
  Age: 54 Year
  Sex: Female
  Weight: 60 kg

DRUGS (4)
  1. HUMIRA [Suspect]
     Active Substance: ADALIMUMAB
     Indication: RHEUMATOID ARTHRITIS
     Route: 058
     Dates: start: 2017, end: 20180607
  2. DIPYRONE [Suspect]
     Active Substance: DIPYRONE
     Indication: PRODUCT USED FOR UNKNOWN INDICATION
     Dosage: PATIENT TOOK 2 TABLETS IN THE MORNING AND 2 IN THE NIGHT
     Route: 065
  3. HUMIRA [Suspect]
     Active Substance: ADALIMUMAB
     Route: 058
     Dates: start: 20180607
  4. TECNOMET [Concomitant]
     Active Substance: METHOTREXATE
     Indication: RHEUMATOID ARTHRITIS
     Dosage: PATIENT TOOK 2 TABLETS IN THE MORNING AND 2 IN THE NIGHT

REACTIONS (14)
  - Cataract [Recovered/Resolved]
  - Eye pain [Recovered/Resolved]
  - Cataract [Not Recovered/Not Resolved]
  - Hypersensitivity [Recovered/Resolved]
  - Influenza [Recovered/Resolved]
  - Eye pain [Recovered/Resolved]
  - Eye injury [Not Recovered/Not Resolved]
  - Headache [Recovered/Resolved]
  - Eye ulcer [Not Recovered/Not Resolved]
  - Memory impairment [Recovering/Resolving]
  - Arthralgia [Unknown]
  - Abdominal mass [Recovered/Resolved]
  - Facial pain [Recovered/Resolved]
  - Therapeutic response shortened [Recovered/Resolved]

NARRATIVE: CASE EVENT DATE: 20180322
